FAERS Safety Report 8560520-5 (Version None)
Quarter: 2012Q3

REPORT INFORMATION
  Report Type: 
  Country: None (occurrence: None)
  Receive Date: 20120802
  Receipt Date: 20120731
  Transmission Date: 20120928
  Serious: Yes (Death, Other)
  Sender: FDA-Public Use
  Company Number: US-PFIZER INC-2012176291

PATIENT
  Sex: Male

DRUGS (2)
  1. MEGACE [Concomitant]
     Dosage: UNK
  2. SUTENT [Suspect]
     Indication: RENAL CANCER
     Dosage: 50 MG, DAILY

REACTIONS (4)
  - ASCITES [None]
  - FATIGUE [None]
  - DEATH [None]
  - NAUSEA [None]
